FAERS Safety Report 22167980 (Version 1)
Quarter: 2023Q2

REPORT INFORMATION
  Report Type: Spontaneous
  Country: US (occurrence: None)
  Receive Date: 20230401
  Receipt Date: 20230401
  Transmission Date: 20230722
  Serious: Yes (Hospitalization)
  Sender: FDA-Public Use
  Company Number: None

PATIENT
  Sex: Male
  Weight: 90.26 kg

DRUGS (12)
  1. INLYTA [Suspect]
     Active Substance: AXITINIB
     Indication: Renal cancer
     Dosage: FREQUENCY : TWICE A DAY;?
     Route: 048
  2. ACETAMINOPHEN [Concomitant]
  3. Aspirin [Concomitant]
  4. ATORVASTATIN [Concomitant]
  5. Centrum [Concomitant]
  6. COLACE [Concomitant]
     Active Substance: DOCUSATE SODIUM
  7. COREG [Concomitant]
     Active Substance: CARVEDILOL
  8. LATANOPROST [Concomitant]
     Active Substance: LATANOPROST
  9. LISINOPRIL [Concomitant]
  10. Nitroglcerin [Concomitant]
  11. PLAVIX [Concomitant]
     Active Substance: CLOPIDOGREL BISULFATE
  12. Vitamin B Complex Combinations [Concomitant]

REACTIONS (2)
  - Dyspnoea [None]
  - Therapy cessation [None]
